FAERS Safety Report 7929984-1 (Version None)
Quarter: 2011Q4

REPORT INFORMATION
  Report Type: 
  Country: None (occurrence: None)
  Receive Date: 20111117
  Receipt Date: 20111107
  Transmission Date: 20120403
  Serious: Yes (Other)
  Sender: FDA-Public Use
  Company Number: TPA2011A07479

PATIENT
  Sex: Female

DRUGS (1)
  1. ACTOS [Suspect]

REACTIONS (8)
  - DYSURIA [None]
  - MICTURITION URGENCY [None]
  - MUSCULOSKELETAL DISCOMFORT [None]
  - ABDOMINAL PAIN [None]
  - BLADDER CANCER [None]
  - BACK PAIN [None]
  - POLLAKIURIA [None]
  - GASTROINTESTINAL DISORDER [None]
